FAERS Safety Report 5251491-8 (Version None)
Quarter: 2007Q1

REPORT INFORMATION
  Report Type: 
  Country: None (occurrence: None)
  Receive Date: 20070228
  Receipt Date: 20060613
  Transmission Date: 20070707
  Serious: No
  Sender: FDA-Public Use
  Company Number: US-GLAXOSMITHKLINE-A0606042A

PATIENT
  Age: 25 Year
  Sex: Female
  Weight: 79.5 kg

DRUGS (2)
  1. LAMICTAL [Suspect]
     Indication: CONVULSION PROPHYLAXIS
     Route: 048
  2. NO CONCURRENT MEDICATION [Concomitant]

REACTIONS (2)
  - BLOOD CREATINE PHOSPHOKINASE INCREASED [None]
  - BURNING SENSATION [None]
